FAERS Safety Report 14636544 (Version 4)
Quarter: 2024Q3

REPORT INFORMATION
  Report Type: Report from Study
  Country: JP (occurrence: JP)
  Receive Date: 20180314
  Receipt Date: 20240913
  Transmission Date: 20241017
  Serious: Yes (Death, Hospitalization, Other)
  Sender: SANOFI AVENTIS
  Company Number: JP-SA-2018SA047707

PATIENT
  Age: 4 Month
  Sex: Female
  Weight: 14 kg

DRUGS (2)
  1. ALGLUCOSIDASE ALFA [Suspect]
     Active Substance: ALGLUCOSIDASE ALFA
     Indication: Glycogen storage disease type II
     Dosage: 17.8 MG/KG
     Route: 041
     Dates: start: 20070614, end: 201702
  2. GASTER [Concomitant]
     Active Substance: FAMOTIDINE
     Indication: Product used for unknown indication
     Route: 048
     Dates: start: 20150313

REACTIONS (6)
  - Colitis ulcerative [Fatal]
  - Multiple organ dysfunction syndrome [Fatal]
  - Thrombosis [Fatal]
  - Septic shock [Fatal]
  - Disseminated intravascular coagulation [Fatal]
  - Cardiac failure [Unknown]

NARRATIVE: CASE EVENT DATE: 20070101
